FAERS Safety Report 18534376 (Version 1)
Quarter: 2020Q4

REPORT INFORMATION
  Report Type: Spontaneous
  Country: CN (occurrence: CN)
  Receive Date: 20201123
  Receipt Date: 20201123
  Transmission Date: 20210114
  Serious: Yes (Death)
  Sender: FDA-Public Use
  Company Number: CN-GLAXOSMITHKLINE-CN2020APC227686

PATIENT
  Age: 21 Year
  Sex: Female

DRUGS (1)
  1. MUPIROCIN. [Suspect]
     Active Substance: MUPIROCIN
     Indication: SKIN INFECTION
     Dosage: 1 DF, BID
     Dates: start: 20201116, end: 20201116

REACTIONS (3)
  - Discomfort [Recovered/Resolved]
  - Skin irritation [Recovered/Resolved]
  - Skin infection [Fatal]

NARRATIVE: CASE EVENT DATE: 20201116
